FAERS Safety Report 12145630 (Version 1)
Quarter: 2016Q1

REPORT INFORMATION
  Report Type: Spontaneous
  Country: US (occurrence: None)
  Receive Date: 20160303
  Receipt Date: 20160303
  Transmission Date: 20160526
  Serious: No
  Sender: FDA-Public Use
  Company Number: None

PATIENT
  Age: 55 Year
  Sex: Female
  Weight: 108.86 kg

DRUGS (25)
  1. AMITIZA [Concomitant]
     Active Substance: LUBIPROSTONE
  2. TOPIRAMATE. [Concomitant]
     Active Substance: TOPIRAMATE
  3. CYANOCOBALAMIN (VIT B-12) [Concomitant]
  4. ZOLPIDEM ER [Concomitant]
     Active Substance: ZOLPIDEM\ZOLPIDEM TARTRATE
  5. ALEMTUZUMAB [Suspect]
     Active Substance: ALEMTUZUMAB
     Indication: MULTIPLE SCLEROSIS
     Dosage: 12 MG QD FOR 3 DAYS IV
     Route: 042
     Dates: start: 20150706, end: 20150708
  6. CLONIDINE HCL [Concomitant]
     Active Substance: CLONIDINE HYDROCHLORIDE
  7. VESICARE [Concomitant]
     Active Substance: SOLIFENACIN SUCCINATE
  8. BISOPROLOL FUMARATE. [Concomitant]
     Active Substance: BISOPROLOL FUMARATE
  9. LORATADINE. [Concomitant]
     Active Substance: LORATADINE
  10. SPIRONOLACTONE. [Concomitant]
     Active Substance: SPIRONOLACTONE
  11. ACYCLOVIR. [Concomitant]
     Active Substance: ACYCLOVIR
  12. HYDROXYZINE HCL [Concomitant]
     Active Substance: HYDROXYZINE HYDROCHLORIDE
  13. TRAMADOL. [Concomitant]
     Active Substance: TRAMADOL
  14. CLOPIDOGREL [Concomitant]
     Active Substance: CLOPIDOGREL BISULFATE
  15. FENOFIBRATE. [Concomitant]
     Active Substance: FENOFIBRATE
  16. VENTOLIN HFA [Concomitant]
     Active Substance: ALBUTEROL SULFATE
  17. VERAPAMIL ER [Concomitant]
     Active Substance: VERAPAMIL HYDROCHLORIDE
  18. TIZANIDINE. [Concomitant]
     Active Substance: TIZANIDINE
  19. CARAFATE [Concomitant]
     Active Substance: SUCRALFATE
  20. ROSUVASTATIN [Concomitant]
     Active Substance: ROSUVASTATIN
  21. FAMOTIDINE. [Concomitant]
     Active Substance: FAMOTIDINE
  22. BACLOFEN. [Concomitant]
     Active Substance: BACLOFEN
  23. SOLU-MEDROL [Suspect]
     Active Substance: METHYLPREDNISOLONE SODIUM SUCCINATE
     Dosage: 1 MG QD FOR 3 DAYS IV
     Route: 042
     Dates: start: 20150706, end: 20150708
  24. TIZANIDINE. [Concomitant]
     Active Substance: TIZANIDINE
  25. PROMETHAZINE [Concomitant]
     Active Substance: PROMETHAZINE\PROMETHAZINE HYDROCHLORIDE

REACTIONS (1)
  - Hallucination [None]

NARRATIVE: CASE EVENT DATE: 20160224
